FAERS Safety Report 23678703 (Version 3)
Quarter: 2025Q1

REPORT INFORMATION
  Report Type: Report from Study
  Country: CA (occurrence: CA)
  Receive Date: 20240327
  Receipt Date: 20250313
  Transmission Date: 20250408
  Serious: Yes (Hospitalization, Other)
  Sender: Alvotech
  Company Number: CA-JAMP PHARMA CORPORATION-2023-JAM-CA-02050

PATIENT
  Age: 26 Year
  Sex: Male

DRUGS (2)
  1. SIMLANDI [Suspect]
     Active Substance: ADALIMUMAB-RYVK
     Indication: Crohn^s disease
     Dosage: 40 MG, EVERY WEEK
     Route: 065
  2. SIMLANDI [Suspect]
     Active Substance: ADALIMUMAB-RYVK
     Indication: Crohn^s disease
     Dosage: 40 MG, EVERY 2 WEEKS
     Route: 065

REACTIONS (4)
  - Hospitalisation [Unknown]
  - Crohn^s disease [Unknown]
  - Loss of therapeutic response [Unknown]
  - Product dose omission issue [Unknown]

NARRATIVE: CASE EVENT DATE: 20250201
